FAERS Safety Report 6868488-4 (Version None)
Quarter: 2010Q3

REPORT INFORMATION
  Report Type: 
  Country: None (occurrence: None)
  Receive Date: 20100722
  Receipt Date: 20080606
  Transmission Date: 20110219
  Serious: No
  Sender: FDA-Public Use
  Company Number: US-PFIZER INC-2008048394

PATIENT
  Sex: Female
  Weight: 68.2 kg

DRUGS (3)
  1. CHANTIX [Suspect]
     Indication: SMOKING CESSATION THERAPY
     Dates: start: 20080603, end: 20080605
  2. CENESTIN [Concomitant]
  3. BUPRENORPHINE HCL AND NALOXONE HCL [Concomitant]

REACTIONS (4)
  - DYSPHONIA [None]
  - INCORRECT DOSE ADMINISTERED [None]
  - MALAISE [None]
  - VOMITING [None]
